FAERS Safety Report 9211096 (Version 1)
Quarter: 2013Q2

REPORT INFORMATION
  Report Type: Other
  Country: GB (occurrence: GB)
  Receive Date: 20130404
  Receipt Date: 20130404
  Transmission Date: 20140414
  Serious: Yes (Hospitalization, Other)
  Sender: FDA-Public Use
  Company Number: GB-ACTAVIS-2013-05652

PATIENT
  Age: 1 Year
  Sex: Male
  Weight: 10 kg

DRUGS (2)
  1. SALBUTAMOL (UNKNOWN) [Suspect]
     Indication: ASTHMA
     Dosage: 100 MCG, PRN
     Route: 055
     Dates: start: 201110, end: 20130312
  2. BECLOMETASONE [Concomitant]
     Indication: ASTHMA
     Dosage: 50 MCG, BID
     Route: 065

REACTIONS (1)
  - Supraventricular tachycardia [Recovering/Resolving]
